FAERS Safety Report 15127016 (Version 4)
Quarter: 2025Q4

REPORT INFORMATION
  Report Type: Spontaneous
  Country: EU (occurrence: EU)
  Receive Date: 20180710
  Receipt Date: 20251029
  Transmission Date: 20260117
  Serious: Yes (Other)
  Sender: MYLAN
  Company Number: EU-002147023-PHHY2018ES005850

PATIENT
  Age: 57 Year
  Sex: Female

DRUGS (12)
  1. VALPROIC ACID [Interacting]
     Active Substance: VALPROIC ACID
     Indication: Product used for unknown indication
     Dosage: UNK
  2. VALPROIC ACID [Interacting]
     Active Substance: VALPROIC ACID
     Dosage: UNK
     Route: 065
  3. VALPROIC ACID [Interacting]
     Active Substance: VALPROIC ACID
     Dosage: UNK
     Route: 065
  4. VALPROIC ACID [Interacting]
     Active Substance: VALPROIC ACID
     Dosage: UNK
  5. QUETIAPINE [Interacting]
     Active Substance: QUETIAPINE
     Indication: Product used for unknown indication
     Dosage: UNK
  6. QUETIAPINE [Interacting]
     Active Substance: QUETIAPINE
     Dosage: UNK
     Route: 065
  7. QUETIAPINE [Interacting]
     Active Substance: QUETIAPINE
     Dosage: UNK
     Route: 065
  8. QUETIAPINE [Interacting]
     Active Substance: QUETIAPINE
     Dosage: UNK
  9. NIFEDIPINE [Interacting]
     Active Substance: NIFEDIPINE
     Indication: Product used for unknown indication
     Dosage: UNK
  10. NIFEDIPINE [Interacting]
     Active Substance: NIFEDIPINE
     Dosage: UNK
     Route: 065
  11. NIFEDIPINE [Interacting]
     Active Substance: NIFEDIPINE
     Dosage: UNK
     Route: 065
  12. NIFEDIPINE [Interacting]
     Active Substance: NIFEDIPINE
     Dosage: UNK

REACTIONS (3)
  - Drug interaction [Unknown]
  - Coma [Unknown]
  - Hypotension [Unknown]
